FAERS Safety Report 10749666 (Version 2)
Quarter: 2015Q1

REPORT INFORMATION
  Report Type: Spontaneous
  Country: JP (occurrence: JP)
  Receive Date: 20150129
  Receipt Date: 20150220
  Transmission Date: 20150721
  Serious: Yes (Hospitalization)
  Sender: FDA-Public Use
  Company Number: JP-DSJP-DSJ-2014-131118

PATIENT

DRUGS (3)
  1. CHUJOTO [Concomitant]
     Indication: MENOPAUSAL SYMPTOMS
     Dosage: 1DF IN 3 DEVIDED DOSES, TID
     Route: 048
     Dates: start: 2004, end: 20140522
  2. OLMETEC [Suspect]
     Active Substance: OLMESARTAN MEDOXOMIL
     Indication: HYPERTENSION
     Dosage: 20 MG, QD
     Route: 048
     Dates: start: 2007, end: 20140523
  3. PRAVASTATIN SODIUM. [Suspect]
     Active Substance: PRAVASTATIN SODIUM
     Indication: HYPERLIPIDAEMIA
     Dosage: 10 MG, QD
     Route: 048
     Dates: start: 2007, end: 20140522

REACTIONS (1)
  - Interstitial lung disease [Recovered/Resolved]

NARRATIVE: CASE EVENT DATE: 201405
